FAERS Safety Report 8567491 (Version 2)
Quarter: 2014Q1

REPORT INFORMATION
  Report Type: Spontaneous
  Country: US (occurrence: None)
  Receive Date: 20120323
  Receipt Date: 20130305
  Transmission Date: 20141002
  Serious: Yes (Hospitalization, Other)
  Sender: FDA-Public Use
  Company Number: 163-21880-11101684

PATIENT
  Age: 86 Year
  Sex: Female

DRUGS (4)
  1. REVLIMID [Suspect]
     Indication: PLASMA CELL MYELOMA
     Dosage: 25 MG, DAILY D1-21 Q 28D, PO
     Route: 048
     Dates: start: 20110714
  2. METOPROLOL [Concomitant]
  3. ASA (ACETYLSALICYLIC ACID) [Concomitant]
  4. DEXAMETHASONE [Concomitant]

REACTIONS (4)
  - Pancytopenia [None]
  - Anxiety [None]
  - Diarrhoea [None]
  - Tremor [None]
